FAERS Safety Report 8371138-1 (Version None)
Quarter: 2012Q2

REPORT INFORMATION
  Report Type: 
  Country: None (occurrence: None)
  Receive Date: 20120518
  Receipt Date: 20120507
  Transmission Date: 20120825
  Serious: Yes (Hospitalization)
  Sender: FDA-Public Use
  Company Number: US-UCBSA-056160

PATIENT
  Age: 64 Year
  Sex: Female

DRUGS (24)
  1. FOLIC ACID [Concomitant]
     Indication: ROUTINE HEALTH MAINTENANCE
     Route: 048
     Dates: start: 20050818, end: 20120428
  2. DIGOXIN [Concomitant]
     Indication: ATRIAL FIBRILLATION
     Route: 048
     Dates: start: 20080605
  3. LASIX [Concomitant]
     Route: 048
     Dates: start: 20080811, end: 20120428
  4. ASPIRIN [Concomitant]
     Indication: HYPERTENSION
     Dosage: DAILY DOSE: 81 MG
     Route: 048
     Dates: start: 20120101
  5. DUONEB [Concomitant]
  6. METFORMIN HCL [Concomitant]
  7. DILTIAZEM [Concomitant]
     Route: 048
  8. LASIX [Concomitant]
     Indication: OEDEMA
     Route: 048
     Dates: start: 20120101
  9. LASIX [Concomitant]
     Route: 048
  10. PROTONIX [Concomitant]
  11. POTASSIUM CHLORIDE [Concomitant]
     Indication: HYPOKALAEMIA
     Dates: start: 20120101
  12. NOVOLOG MIX 70/30 [Concomitant]
     Indication: DIABETES MELLITUS
     Dosage: 16 UNITS BID
     Route: 058
     Dates: start: 20111115, end: 20120428
  13. DILTIAZEM [Concomitant]
     Route: 048
  14. HEPARIN [Concomitant]
     Route: 042
  15. ATENOLOL [Concomitant]
     Indication: HYPERTENSION
     Route: 048
     Dates: start: 20000601, end: 20120428
  16. POTASSIUM CHLORIDE [Concomitant]
     Route: 048
     Dates: start: 20080811, end: 20120428
  17. ASPIRIN [Concomitant]
     Route: 048
     Dates: start: 20080605, end: 20120428
  18. GLIPIZIDE [Concomitant]
     Indication: DIABETES MELLITUS
     Route: 048
     Dates: start: 20100813
  19. DILTIAZEM [Concomitant]
     Route: 042
     Dates: start: 20120101
  20. CIMZIA [Suspect]
     Dosage: NO OF DOSESE RECEIVED: 26
     Route: 058
     Dates: start: 20110623, end: 20120426
  21. POTASSIUM CHLORIDE [Concomitant]
  22. METHOTREXATE [Concomitant]
     Indication: RHEUMATOID ARTHRITIS
     Dosage: 15 MG QS
     Route: 048
     Dates: start: 20081223, end: 20120428
  23. METHOTREXATE [Concomitant]
     Dosage: ON THURSDAYS
     Dates: start: 20120401
  24. CARTIA XT [Concomitant]
     Indication: HYPERTENSION
     Route: 048
     Dates: start: 20080605, end: 20120428

REACTIONS (1)
  - CARDIAC FAILURE CONGESTIVE [None]
